FAERS Safety Report 8395669-3 (Version None)
Quarter: 2012Q2

REPORT INFORMATION
  Report Type: 
  Country: None (occurrence: None)
  Receive Date: 20120530
  Receipt Date: 20120207
  Transmission Date: 20120825
  Serious: No
  Sender: FDA-Public Use
  Company Number: US-GLAXOSMITHKLINE-A0965008A

PATIENT
  Age: 61 Year
  Sex: Female

DRUGS (4)
  1. ADVAIR DISKUS 100/50 [Concomitant]
  2. SPIRIVA [Concomitant]
  3. VENTOLIN [Suspect]
     Indication: ASTHMA
     Dosage: 2PUFF SIX TIMES PER DAY
     Route: 055
     Dates: start: 20020101
  4. LOPRESSOR [Concomitant]

REACTIONS (4)
  - DYSPNOEA [None]
  - CHEST DISCOMFORT [None]
  - PRODUCT QUALITY ISSUE [None]
  - DRUG INEFFECTIVE [None]
